FAERS Safety Report 19890790 (Version 2)
Quarter: 2021Q4

REPORT INFORMATION
  Report Type: Spontaneous
  Country: CA (occurrence: CA)
  Receive Date: 20210927
  Receipt Date: 20211007
  Transmission Date: 20220303
  Serious: Yes (Other)
  Sender: FDA-Public Use
  Company Number: CA-TEVA-2021-CA-1957335

PATIENT
  Sex: Female

DRUGS (1)
  1. MODAFINIL [Suspect]
     Active Substance: MODAFINIL
     Indication: Brain injury
     Dates: start: 2018

REACTIONS (6)
  - Hypokinesia [Unknown]
  - Therapeutic product effect decreased [Unknown]
  - Mental disorder [Unknown]
  - Vital functions abnormal [Unknown]
  - Nervous system disorder [Unknown]
  - Burnout syndrome [Unknown]
